FAERS Safety Report 4835649-5 (Version None)
Quarter: 2005Q4

REPORT INFORMATION
  Report Type: 
  Country: None (occurrence: None)
  Receive Date: 20051121
  Receipt Date: 20051109
  Transmission Date: 20060501
  Serious: Yes (Hospitalization)
  Sender: FDA-Public Use
  Company Number: 2005150193

PATIENT
  Age: 54 Year
  Sex: Female

DRUGS (4)
  1. DOSTINEX [Suspect]
     Indication: HYPERPROLACTINAEMIA
     Dosage: 0.5 MG (0.5 MG, WEEKLY), ORAL
     Route: 048
  2. BISOPROLOL FUMARATE [Concomitant]
  3. SINGULAIR [Concomitant]
  4. ORTHO EVRA [Concomitant]

REACTIONS (6)
  - BLOOD ANTIDIURETIC HORMONE ABNORMAL [None]
  - BLOOD GLUCOSE DECREASED [None]
  - BLOOD PROLACTIN INCREASED [None]
  - BREAST MASS [None]
  - HYPOTENSION [None]
  - POLYURIA [None]
